FAERS Safety Report 25856805 (Version 2)
Quarter: 2025Q4

REPORT INFORMATION
  Report Type: Spontaneous
  Country: EU (occurrence: EU)
  Receive Date: 20250929
  Receipt Date: 20251001
  Transmission Date: 20260117
  Serious: Yes (Other)
  Sender: CELLTRION
  Company Number: EU-CELLTRION INC.-2025FR034474

PATIENT

DRUGS (3)
  1. INFLIXIMAB [Suspect]
     Active Substance: INFLIXIMAB
     Indication: Ankylosing spondylitis
     Dosage: TWO INJECTION PER WEEK
  2. INFLIXIMAB [Suspect]
     Active Substance: INFLIXIMAB
     Dosage: ONE INJECTION PER WEEK (PREVIOUSLY)
     Dates: start: 202410
  3. INFLIXIMAB [Suspect]
     Active Substance: INFLIXIMAB
     Dosage: ONE INJECTION EVERY TWO WEEK
     Dates: start: 202407, end: 202410

REACTIONS (5)
  - Lung neoplasm malignant [Unknown]
  - Pain [Unknown]
  - Arterial disorder [Unknown]
  - Therapeutic response decreased [Unknown]
  - Intentional product use issue [Unknown]
